FAERS Safety Report 8350530-5 (Version None)
Quarter: 2012Q2

REPORT INFORMATION
  Report Type: 
  Country: None (occurrence: None)
  Receive Date: 20120510
  Receipt Date: 20120430
  Transmission Date: 20120825
  Serious: Yes (Other)
  Sender: FDA-Public Use
  Company Number: CN-JNJFOC-20120506286

PATIENT

DRUGS (5)
  1. BORTEZOMIB [Suspect]
     Indication: POEMS SYNDROME
     Route: 042
  2. DEXAMETHASONE TAB [Suspect]
     Indication: POEMS SYNDROME
     Route: 065
  3. CYCLOPHOSPHAMIDE [Suspect]
     Indication: POEMS SYNDROME
     Route: 065
  4. DOXORUBICIN HYDROCHLORIDE [Suspect]
     Indication: POEMS SYNDROME
     Route: 042
  5. GRANULOCYTE COLONY STIMULATING  FACTOR [Concomitant]
     Indication: POEMS SYNDROME
     Route: 058

REACTIONS (1)
  - HYPOXIA [None]
